FAERS Safety Report 17721432 (Version 1)
Quarter: 2020Q2

REPORT INFORMATION
  Report Type: Spontaneous
  Country: US (occurrence: US)
  Receive Date: 20200429
  Receipt Date: 20200429
  Transmission Date: 20200714
  Serious: Yes (Hospitalization, Other)
  Sender: FDA-Public Use
  Company Number: US-NEXUS PHARMA-000009

PATIENT
  Age: 58 Year
  Sex: Male

DRUGS (4)
  1. ARSENIC [Suspect]
     Active Substance: ARSENIC
     Indication: ACUTE PROMYELOCYTIC LEUKAEMIA
     Route: 042
  2. GEMTUZUMAB/GEMTUZUMAB OZOGAMICIN [Suspect]
     Active Substance: GEMTUZUMAB OZOGAMICIN
     Indication: ACUTE PROMYELOCYTIC LEUKAEMIA
  3. BOSUTINIB [Suspect]
     Active Substance: BOSUTINIB
     Indication: CHRONIC MYELOID LEUKAEMIA
  4. TRETINOIN. [Suspect]
     Active Substance: TRETINOIN
     Indication: ACUTE PROMYELOCYTIC LEUKAEMIA

REACTIONS (5)
  - Renal failure [Recovering/Resolving]
  - Conjunctival haemorrhage [Recovering/Resolving]
  - Peripheral ischaemia [Recovering/Resolving]
  - Haemorrhage intracranial [Recovering/Resolving]
  - Thrombocytopenia [Recovering/Resolving]
